FAERS Safety Report 11685498 (Version 10)
Quarter: 2017Q2

REPORT INFORMATION
  Report Type: Spontaneous
  Country: US (occurrence: US)
  Receive Date: 20151030
  Receipt Date: 20170526
  Transmission Date: 20170829
  Serious: Yes (Congenital Anomaly, Other)
  Sender: FDA-Public Use
  Company Number: PHEH2015US021765

PATIENT
  Sex: Male

DRUGS (3)
  1. ZOFRAN [Suspect]
     Active Substance: ONDANSETRON HYDROCHLORIDE
     Indication: FOETAL EXPOSURE DURING PREGNANCY
     Dosage: UNK
     Route: 064
  2. ONDANSETRON [Suspect]
     Active Substance: ONDANSETRON
     Indication: FOETAL EXPOSURE DURING PREGNANCY
     Dosage: UNK
     Route: 064
  3. ONDANSETRONE DR. REDDY^S [Suspect]
     Active Substance: ONDANSETRON HYDROCHLORIDE
     Indication: FOETAL EXPOSURE DURING PREGNANCY
     Dosage: MOTHER DOSE: 1 DF
     Route: 064

REACTIONS (51)
  - Congenital emphysema [Unknown]
  - Pulmonary artery dilatation [Unknown]
  - Pericardial effusion [Unknown]
  - Upper respiratory tract infection [Unknown]
  - Emotional distress [Unknown]
  - Injury [Unknown]
  - Dental caries [Unknown]
  - Anxiety [Unknown]
  - Heart disease congenital [Unknown]
  - Cardiomegaly [Unknown]
  - Patent ductus arteriosus [Unknown]
  - Pulmonary valve stenosis [Unknown]
  - Jaundice neonatal [Unknown]
  - Candida infection [Unknown]
  - Viral rash [Unknown]
  - Right-to-left cardiac shunt [Unknown]
  - Phimosis [Unknown]
  - Selective eating disorder [Unknown]
  - Acute sinusitis [Unknown]
  - Pain [Unknown]
  - Carbuncle [Unknown]
  - Cerumen impaction [Unknown]
  - Constipation [Unknown]
  - Fallot^s tetralogy [Unknown]
  - Umbilical granuloma [Unknown]
  - Ear infection [Unknown]
  - Urethritis [Unknown]
  - Ventricular septal defect [Unknown]
  - Atrial septal defect [Unknown]
  - Right ventricle outflow tract obstruction [Unknown]
  - Bronchial hyperreactivity [Unknown]
  - Sleep apnoea syndrome [Unknown]
  - Bronchitis [Unknown]
  - Decreased appetite [Unknown]
  - Influenza [Unknown]
  - Left-to-right cardiac shunt [Unknown]
  - Hypospadias [Unknown]
  - Pneumonia bacterial [Unknown]
  - Failure to thrive [Unknown]
  - Seizure [Unknown]
  - Gastroenteritis [Unknown]
  - Tonsillar hypertrophy [Unknown]
  - Congenital anomaly [Unknown]
  - Foetal exposure during pregnancy [Unknown]
  - Pulmonary valve disease [Unknown]
  - Otitis media [Unknown]
  - Adenoidal hypertrophy [Unknown]
  - Atelectasis neonatal [Unknown]
  - Neonatal tachypnoea [Unknown]
  - Anhedonia [Unknown]
  - Stomatitis [Unknown]
